FAERS Safety Report 10036843 (Version 2)
Quarter: 2014Q2

REPORT INFORMATION
  Report Type: Spontaneous
  Country: US (occurrence: US)
  Receive Date: 20140326
  Receipt Date: 20140410
  Transmission Date: 20141212
  Serious: Yes (Hospitalization)
  Sender: FDA-Public Use
  Company Number: US-009507513-1403USA011281

PATIENT
  Age: 44 Year
  Sex: Female

DRUGS (2)
  1. K-DUR [Suspect]
     Indication: MINERAL SUPPLEMENTATION
     Dosage: 600 MEQ (THIRTY 20-MEQ TABLETS)
     Route: 048
  2. XANAX [Suspect]
     Dosage: TOTAL THEORETICAL AMOUNT: 60 MG (SIXTY 1 MG TABLETS)
     Route: 048

REACTIONS (5)
  - Bezoar [Recovered/Resolved]
  - Hyperkalaemia [Recovered/Resolved]
  - Intentional overdose [Unknown]
  - Oesophagogastroduodenoscopy [Recovered/Resolved]
  - Gastrointestinal tube insertion [Recovered/Resolved]
